FAERS Safety Report 25314217 (Version 1)
Quarter: 2025Q2

REPORT INFORMATION
  Report Type: Report from Study
  Country: CA (occurrence: CA)
  Receive Date: 20250514
  Receipt Date: 20250514
  Transmission Date: 20250717
  Serious: Yes (Other)
  Sender: TAKEDA
  Company Number: CA-TAKEDA-2025TUS036580

PATIENT
  Sex: Female

DRUGS (4)
  1. VEDOLIZUMAB [Suspect]
     Active Substance: VEDOLIZUMAB
     Indication: Colitis ulcerative
  2. IRON [Concomitant]
     Active Substance: IRON
  3. ANGELIQ [Concomitant]
     Active Substance: DROSPIRENONE\ESTRADIOL
  4. ZOPICLONE [Concomitant]
     Active Substance: ZOPICLONE

REACTIONS (2)
  - Foetal death [Not Recovered/Not Resolved]
  - Pregnancy [Not Recovered/Not Resolved]
